FAERS Safety Report 9914897 (Version 2)
Quarter: 2014Q1

REPORT INFORMATION
  Report Type: Spontaneous
  Country: US (occurrence: US)
  Receive Date: 20140220
  Receipt Date: 20140317
  Transmission Date: 20141002
  Serious: No
  Sender: FDA-Public Use
  Company Number: US-PFIZER INC-2014046774

PATIENT
  Age: 54 Year
  Sex: Female
  Weight: 97.27 kg

DRUGS (2)
  1. INLYTA [Suspect]
     Indication: RENAL CELL CARCINOMA
     Dosage: 5 MG, 2X/DAY
     Route: 048
     Dates: start: 201307
  2. LEVOTHYROXINE [Concomitant]
     Dosage: UNK

REACTIONS (1)
  - Rash generalised [Unknown]
